FAERS Safety Report 19042589 (Version 1)
Quarter: 2021Q1

REPORT INFORMATION
  Report Type: Spontaneous
  Country: US (occurrence: US)
  Receive Date: 20210322
  Receipt Date: 20210322
  Transmission Date: 20210420
  Serious: Yes (Other)
  Sender: FDA-Public Use
  Company Number: None

PATIENT
  Age: 24 Year
  Sex: Female

DRUGS (10)
  1. FOLIC ACID. [Concomitant]
     Active Substance: FOLIC ACID
  2. CLORAZEPATE [Suspect]
     Active Substance: CLORAZEPATE DIPOTASSIUM
     Route: 048
  3. THIAMINE. [Concomitant]
     Active Substance: THIAMINE
  4. ONDANSETRON [Concomitant]
     Active Substance: ONDANSETRON
  5. CLONIDINE. [Concomitant]
     Active Substance: CLONIDINE
  6. LORAZEPAM. [Concomitant]
     Active Substance: LORAZEPAM
  7. MAGNESIUM OXIDE. [Concomitant]
     Active Substance: MAGNESIUM OXIDE
  8. ACETAMINOPHEN. [Concomitant]
     Active Substance: ACETAMINOPHEN
  9. TRAZODONE [Suspect]
     Active Substance: TRAZODONE HYDROCHLORIDE
     Indication: SLEEP DISORDER
     Route: 048
  10. MULTIVITAMIN [Concomitant]
     Active Substance: VITAMINS

REACTIONS (5)
  - Urticaria [None]
  - Swollen tongue [None]
  - Lip swelling [None]
  - Paraesthesia oral [None]
  - Pruritus [None]
